FAERS Safety Report 5922977-5 (Version None)
Quarter: 2008Q4

REPORT INFORMATION
  Report Type: 
  Country: None (occurrence: None)
  Receive Date: 20081018
  Receipt Date: 20081007
  Transmission Date: 20090506
  Serious: Yes (Hospitalization, Other)
  Sender: FDA-Public Use
  Company Number: CA-PFIZER INC-2008085559

PATIENT
  Sex: Male

DRUGS (1)
  1. CHANTIX [Suspect]

REACTIONS (4)
  - AGGRESSION [None]
  - HALLUCINATION, AUDITORY [None]
  - NERVOUSNESS [None]
  - PSYCHOTIC DISORDER [None]
